FAERS Safety Report 6981995-9 (Version None)
Quarter: 2010Q3

REPORT INFORMATION
  Report Type: 
  Country: None (occurrence: None)
  Receive Date: 20100914
  Receipt Date: 20091113
  Transmission Date: 20110219
  Serious: No
  Sender: FDA-Public Use
  Company Number: US-PFIZER INC-2009276283

PATIENT
  Sex: Female
  Weight: 72.6 kg

DRUGS (10)
  1. LYRICA [Suspect]
     Indication: MUSCULOSKELETAL CHEST PAIN
     Dosage: 75 MG, 2X/DAY
     Route: 048
     Dates: start: 20081015
  2. LYRICA [Suspect]
     Indication: COSTOCHONDRITIS
     Dosage: 75 MG, 1X/DAY
     Route: 048
     Dates: start: 20090915
  3. LYRICA [Suspect]
     Indication: NEURALGIA
     Dosage: 75 MG, 2X/DAY
     Route: 048
     Dates: start: 20090101
  4. ATIVAN [Suspect]
     Indication: INSOMNIA
     Dosage: 1.5 MG/DAY
     Route: 048
  5. NORFLEX [Suspect]
     Indication: MUSCLE RELAXANT THERAPY
     Dosage: 75 MG/DAY
     Route: 048
  6. MORPHINE [Concomitant]
     Indication: PAIN
     Dosage: 15 MG, 2X/DAY
  7. LACTULOSE [Concomitant]
     Dosage: 1 TABLESPOON FULL TWICE DAILY
  8. LAMICTAL [Concomitant]
     Indication: DEPRESSION
     Dosage: 200 MG, 1X/DAY
     Route: 048
  9. MAGNESIUM [Concomitant]
     Dosage: UNK
  10. VAGIFEM [Concomitant]
     Dosage: 105 UG, UNK
     Route: 067

REACTIONS (15)
  - ARTHRALGIA [None]
  - BLOOD CREATINE PHOSPHOKINASE INCREASED [None]
  - DIARRHOEA [None]
  - GASTROOESOPHAGEAL REFLUX DISEASE [None]
  - INSOMNIA [None]
  - MOTOR DYSFUNCTION [None]
  - MUSCLE FATIGUE [None]
  - MUSCLE SPASMS [None]
  - MUSCULAR WEAKNESS [None]
  - MYALGIA [None]
  - NAUSEA [None]
  - PAIN [None]
  - PAIN IN EXTREMITY [None]
  - ULCER [None]
  - WEIGHT DECREASED [None]
